FAERS Safety Report 17058384 (Version 2)
Quarter: 2019Q4

REPORT INFORMATION
  Report Type: Spontaneous
  Country: FR (occurrence: FR)
  Receive Date: 20191121
  Receipt Date: 20191227
  Transmission Date: 20200122
  Serious: Yes (Hospitalization, Other)
  Sender: FDA-Public Use
  Company Number: FR-SA-2019SA318413

PATIENT
  Age: 39 Year
  Sex: Male
  Weight: 69.8 kg

DRUGS (6)
  1. ISONIAZID. [Suspect]
     Active Substance: ISONIAZID
     Indication: PULMONARY TUBERCULOMA
     Dosage: 50 MG, QD (1 TABLET OF 50 MG 1X/DAY IN THE MORNING)
     Route: 048
     Dates: start: 20191004, end: 20191019
  2. ISONIAZID. [Suspect]
     Active Substance: ISONIAZID
     Dosage: 300 MG, QD
     Route: 048
     Dates: start: 20191004, end: 20191019
  3. BECILAN [Concomitant]
     Active Substance: PYRIDOXINE
     Dosage: 500 MG, QD (2 TABLETS 1X/DAY IN THE EVENING)
     Route: 048
     Dates: start: 20191004
  4. PYRAZINAMIDE. [Suspect]
     Active Substance: PYRAZINAMIDE
     Indication: PULMONARY TUBERCULOMA
     Dosage: 1500 MG, QD (3 TABLETS 1X/DAY IN THE MORNING)
     Route: 048
     Dates: start: 20191004, end: 20191019
  5. RIFADINE [Suspect]
     Active Substance: RIFAMPIN
     Indication: PULMONARY TUBERCULOMA
     Dosage: 600 MG, QD
     Route: 048
     Dates: start: 20191005, end: 20191019
  6. DEXAMBUTOL [Suspect]
     Active Substance: ETHAMBUTOL HYDROCHLORIDE
     Indication: PULMONARY TUBERCULOMA
     Dosage: 1000 MG, QD (2 TABLETS 1X/DAY IN THE MORNING)
     Route: 048
     Dates: start: 20191005, end: 20191019

REACTIONS (5)
  - Hepatocellular injury [Recovered/Resolved]
  - Headache [Recovered/Resolved]
  - Presyncope [Recovered/Resolved]
  - Pyrexia [Recovered/Resolved]
  - Influenza [Recovered/Resolved]

NARRATIVE: CASE EVENT DATE: 20191016
